FAERS Safety Report 5267488-8 (Version None)
Quarter: 2007Q1

REPORT INFORMATION
  Report Type: 
  Country: None (occurrence: None)
  Receive Date: 20061213
  Receipt Date: 20000315
  Transmission Date: 20070707
  Serious: Yes (Death)
  Sender: FDA-Public Use
  Company Number: 2000UW00976

PATIENT
  Age: 88 Year
  Sex: Female

DRUGS (1)
  1. NOLVADEX [Suspect]
     Indication: DRUG USE FOR UNKNOWN INDICATION
     Dosage: MG PO
     Route: 048

REACTIONS (1)
  - DEATH [None]
